FAERS Safety Report 20861073 (Version 2)
Quarter: 2022Q3

REPORT INFORMATION
  Report Type: Spontaneous
  Country: US (occurrence: US)
  Receive Date: 20220523
  Receipt Date: 20220801
  Transmission Date: 20221026
  Serious: Yes (Death, Other)
  Sender: FDA-Public Use
  Company Number: US-BRISTOL-MYERS SQUIBB COMPANY-2022-043735

PATIENT
  Age: 3 Year
  Sex: Female

DRUGS (1)
  1. THALOMID [Suspect]
     Active Substance: THALIDOMIDE
     Indication: Pineal parenchymal neoplasm malignant
     Dosage: 28 CAPSULES?DISSOLVE INTO 5ML OF LIQUID AND GIVE 3ML PER G-TUBE EVERY DAY
     Route: 065
     Dates: start: 20220214, end: 20220220

REACTIONS (2)
  - Malignant neoplasm progression [Fatal]
  - Intentional product use issue [Unknown]

NARRATIVE: CASE EVENT DATE: 20220326
